FAERS Safety Report 6629818-1 (Version None)
Quarter: 2010Q1

REPORT INFORMATION
  Report Type: 
  Country: None (occurrence: None)
  Receive Date: 20100311
  Receipt Date: 20090701
  Transmission Date: 20100710
  Serious: No
  Sender: FDA-Public Use
  Company Number: US-BIOGENIDEC-2009BI020338

PATIENT
  Sex: Male

DRUGS (2)
  1. AVONEX [Suspect]
     Indication: MULTIPLE SCLEROSIS
     Route: 030
     Dates: start: 20010716, end: 20050621
  2. AVONEX [Suspect]
     Route: 030
     Dates: start: 20051004

REACTIONS (4)
  - ARTHRALGIA [None]
  - DIPLOPIA [None]
  - FALL [None]
  - NECK PAIN [None]
